FAERS Safety Report 8975396 (Version 1)
Quarter: 2012Q4

REPORT INFORMATION
  Report Type: 
  Country: US (occurrence: US)
  Receive Date: 20121219
  Receipt Date: 20121219
  Transmission Date: 20130627
  Serious: No
  Sender: FDA-Public Use
  Company Number: US-PFIZER INC-2012318361

PATIENT
  Age: 46 Year
  Sex: Female
  Weight: 54.42 kg

DRUGS (3)
  1. VORICONAZOLE [Suspect]
     Indication: ASPERGILLOSIS
     Dosage: 300 mg, 2x/day
     Dates: start: 201010
  2. VORICONAZOLE [Suspect]
     Dosage: 300 mg, 2x/day
     Dates: start: 2012
  3. NEXIUM [Concomitant]
     Dosage: UNK

REACTIONS (2)
  - Mucous membrane disorder [Not Recovered/Not Resolved]
  - Dyspnoea [Not Recovered/Not Resolved]
